FAERS Safety Report 14730536 (Version 1)
Quarter: 2018Q2

REPORT INFORMATION
  Report Type: Report from Study
  Country: BR (occurrence: BR)
  Receive Date: 20180406
  Receipt Date: 20180406
  Transmission Date: 20180711
  Serious: Yes (Life-Threatening, Hospitalization, Other)
  Sender: FDA-Public Use
  Company Number: PHHY2018BR042179

PATIENT
  Sex: Female
  Weight: 95 kg

DRUGS (4)
  1. FORASEQ [Suspect]
     Active Substance: BUDESONIDE\FORMOTEROL FUMARATE
     Indication: ASTHMA
     Dosage: 400, QD
     Route: 055
  2. DIPYRONE [Suspect]
     Active Substance: DIPYRONE
     Indication: PRODUCT USED FOR UNKNOWN INDICATION
     Route: 065
  3. LOSARTAN. [Concomitant]
     Active Substance: LOSARTAN
     Indication: HYPERTENSION
     Dosage: UNK
     Route: 048
  4. FORASEQ [Suspect]
     Active Substance: BUDESONIDE\FORMOTEROL FUMARATE
     Dosage: 2 DF, UNK
     Route: 055

REACTIONS (7)
  - Blood pressure increased [Unknown]
  - Maternal exposure during pregnancy [Unknown]
  - Cervix disorder [Unknown]
  - Asthmatic crisis [Recovering/Resolving]
  - High risk pregnancy [Unknown]
  - Asphyxia [Unknown]
  - Urinary tract infection [Unknown]
